FAERS Safety Report 21975222 (Version 2)
Quarter: 2023Q2

REPORT INFORMATION
  Report Type: Report from Study
  Country: CO (occurrence: CO)
  Receive Date: 20230209
  Receipt Date: 20230417
  Transmission Date: 20230722
  Serious: Yes (Hospitalization, Other)
  Sender: FDA-Public Use
  Company Number: CO-ABBVIE-4301672

PATIENT
  Age: 50 Year
  Sex: Male
  Weight: 73 kg

DRUGS (1)
  1. ZEMPLAR [Suspect]
     Active Substance: PARICALCITOL
     Indication: Hyperparathyroidism secondary
     Dosage: FORM STRENGTH: 5 MICROGRAM?FREQUENCY TEXT: POST DIALYSIS?ADDITIONAL COMMENTS: DOES NOT KNOW THIS ...
     Route: 042
     Dates: start: 20211121, end: 20230112

REACTIONS (3)
  - Thyroid disorder [Recovered/Resolved]
  - Drug ineffective [Recovering/Resolving]
  - Blood parathyroid hormone increased [Recovering/Resolving]

NARRATIVE: CASE EVENT DATE: 20211121
